FAERS Safety Report 4545327-8 (Version None)
Quarter: 2005Q1

REPORT INFORMATION
  Report Type: 
  Country: None (occurrence: None)
  Receive Date: 20041222
  Receipt Date: 20040512
  Transmission Date: 20050727
  Serious: Yes (Hospitalization, Other)
  Sender: FDA-Public Use
  Company Number: USA030844646

PATIENT
  Age: 69 Year
  Sex: Female
  Weight: 86 kg

DRUGS (4)
  1. HUMALOG [Suspect]
     Indication: DIABETES MELLITUS
     Dosage: 85 U/DAY
     Dates: start: 20020101
  2. PLAVIX [Concomitant]
  3. ASPIRIN [Concomitant]
  4. NOVOLOG [Concomitant]

REACTIONS (5)
  - DIABETIC NEUROPATHY [None]
  - INJECTION SITE HAEMORRHAGE [None]
  - INTERVERTEBRAL DISC PROTRUSION [None]
  - PARAESTHESIA [None]
  - URINARY INCONTINENCE [None]
